FAERS Safety Report 4941773-9 (Version None)
Quarter: 2006Q1

REPORT INFORMATION
  Report Type: 
  Country: None (occurrence: None)
  Receive Date: 20060308
  Receipt Date: 20060222
  Transmission Date: 20060701
  Serious: Yes (Disabling)
  Sender: FDA-Public Use
  Company Number: 34059

PATIENT

DRUGS (1)
  1. VIGAMOX [Suspect]
     Indication: PROPHYLAXIS

REACTIONS (3)
  - BLINDNESS UNILATERAL [None]
  - ENDOPHTHALMITIS [None]
  - INSTILLATION SITE PAIN [None]
